FAERS Safety Report 6581079-8 (Version None)
Quarter: 2010Q1

REPORT INFORMATION
  Report Type: 
  Country: None (occurrence: None)
  Receive Date: 20100215
  Receipt Date: 20100204
  Transmission Date: 20100710
  Serious: Yes (Death, Other)
  Sender: FDA-Public Use
  Company Number: JP-NOVOPROD-304076

PATIENT
  Sex: Female
  Weight: 35 kg

DRUGS (7)
  1. NOVOSEVEN [Suspect]
     Indication: PLEURAL HAEMORRHAGE
     Dosage: 3.6 MG, BID
     Route: 042
     Dates: start: 20070508, end: 20070508
  2. INSULIN ASPART PROTAMINE [Concomitant]
     Dosage: 35 MG, QD
     Dates: start: 20070508, end: 20070508
  3. RED BLOOD CELLS [Concomitant]
     Dosage: 12080 ML, UNK
     Dates: start: 20070508, end: 20070508
  4. FRESH FROZEN PLASMA [Concomitant]
     Dosage: 7140 ML, QD
     Dates: start: 20070508, end: 20070508
  5. SODIUM CHLORIDE [Concomitant]
     Dosage: 2500 ML, QD
     Dates: start: 20070508, end: 20070508
  6. BLOOD CELLS, PACKED HUMAN [Concomitant]
     Dosage: 1600 ML, QD
     Dates: start: 20070508, end: 20070508
  7. TACHOCOMB                          /01721101/ [Concomitant]

REACTIONS (2)
  - DEATH [None]
  - DRUG INEFFECTIVE [None]
